FAERS Safety Report 7255716-9 (Version None)
Quarter: 2011Q1

REPORT INFORMATION
  Report Type: 
  Country: None (occurrence: None)
  Receive Date: 20110129
  Receipt Date: 20100818
  Transmission Date: 20110831
  Serious: No
  Sender: FDA-Public Use
  Company Number: US-ABBOTT-10P-163-0664969-00

PATIENT
  Age: 59 Year
  Sex: Female

DRUGS (7)
  1. FOSAMAX [Concomitant]
     Indication: OSTEOPENIA
  2. HYDROCHLOROTHIAZIDE [Concomitant]
     Indication: HYPERTENSION
  3. PIROXICAM [Concomitant]
     Indication: ARTHRITIS
  4. HUMIRA [Suspect]
     Indication: CROHN'S DISEASE
     Dates: start: 20090501
  5. OMEPRAZOLE [Concomitant]
     Indication: GASTROOESOPHAGEAL REFLUX DISEASE
  6. MULTI-VITAMINS [Concomitant]
     Indication: PRODUCT USED FOR UNKNOWN INDICATION
  7. BUPROPION HCL [Concomitant]
     Indication: DEPRESSION

REACTIONS (6)
  - VOMITING [None]
  - INJECTION SITE PRURITUS [None]
  - ABDOMINAL PAIN [None]
  - NAUSEA [None]
  - INJECTION SITE PAIN [None]
  - INJECTION SITE ERYTHEMA [None]
